FAERS Safety Report 6239322-0 (Version None)
Quarter: 2009Q2

REPORT INFORMATION
  Report Type: 
  Country: None (occurrence: None)
  Receive Date: 20090622
  Receipt Date: 20090618
  Transmission Date: 20091009
  Serious: Yes (Death, Hospitalization)
  Sender: FDA-Public Use
  Company Number: PHHY2009BR24531

PATIENT
  Sex: Female

DRUGS (1)
  1. EXELON [Suspect]
     Dosage: 1 PATCH/24HR
     Route: 062

REACTIONS (6)
  - DRUG RESISTANCE [None]
  - FALL [None]
  - HYPERTENSION [None]
  - LOWER LIMB FRACTURE [None]
  - PNEUMONIA [None]
  - SURGERY [None]
